FAERS Safety Report 14679824 (Version 1)
Quarter: 2018Q1

REPORT INFORMATION
  Report Type: Spontaneous
  Country: EG (occurrence: EG)
  Receive Date: 20180326
  Receipt Date: 20180326
  Transmission Date: 20180509
  Serious: Yes (Hospitalization, Other)
  Sender: FDA-Public Use
  Company Number: EG-NOVOPROD-591691

PATIENT
  Age: 44 Year
  Sex: Male
  Weight: 90 kg

DRUGS (8)
  1. LANTUS [Concomitant]
     Active Substance: INSULIN GLARGINE
     Indication: DIABETES MELLITUS
     Dosage: 30 IU, QD(30 IU AT NIGHT)
     Route: 058
  2. C-TARD [Concomitant]
     Indication: COAGULATION FACTOR
     Dosage: 1/EACH MEAL
     Route: 048
  3. MIXTARD HUMAN 70/30 [Suspect]
     Active Substance: INSULIN HUMAN
     Indication: DIABETES MELLITUS
     Dosage: STARTED 13 YEARS AGO
     Route: 065
  4. EXFORGE HCT [Concomitant]
     Active Substance: AMLODIPINE BESYLATE\HYDROCHLOROTHIAZIDE\VALSARTAN
     Indication: HYPERTENSION
     Dosage: 1 ORAL TABLET AT MORNING , STARTED IT FROM 1 YEAR
     Route: 048
  5. DAFLON /00426001/ [Concomitant]
     Active Substance: DIOSMIN
     Indication: COAGULATION FACTOR
     Dosage: 1 TAB, BID(1 AT MORNING , 1 AT NIGHT)
     Route: 048
  6. NEVILOB [Concomitant]
     Indication: HYPERTENSION
     Dosage: 1 TAB, SINGLE(1 ORAL TABLET AT NIGHT , STARTED IT FROM 1 YEAR)
     Route: 048
  7. ALPHINTERN [Concomitant]
     Indication: COAGULATION FACTOR
     Dosage: 1 / EACH MEAL
     Route: 048
  8. CLINDAMYCIN. [Concomitant]
     Active Substance: CLINDAMYCIN
     Indication: COAGULATION FACTOR
     Dosage: 1 SYRINGE/DAY FOR A WEEK
     Route: 030

REACTIONS (1)
  - Post procedural haemorrhage [Unknown]
